FAERS Safety Report 7388821-7 (Version None)
Quarter: 2011Q2

REPORT INFORMATION
  Report Type: 
  Country: None (occurrence: None)
  Receive Date: 20110401
  Receipt Date: 20110322
  Transmission Date: 20111010
  Serious: Yes (Death, Hospitalization, Other)
  Sender: FDA-Public Use
  Company Number: GB-BAXTER-2009BH001944

PATIENT
  Age: 19 Year
  Sex: Female
  Weight: 35 kg

DRUGS (5)
  1. SEVOFLURANE [Suspect]
     Indication: GENERAL ANAESTHESIA
     Route: 055
     Dates: start: 20080618, end: 20080618
  2. ACETAMINOPHEN [Suspect]
     Indication: PRODUCT USED FOR UNKNOWN INDICATION
     Route: 065
     Dates: start: 20080601
  3. ACETAMINOPHEN [Suspect]
     Route: 042
     Dates: start: 20080617
  4. PARACETAMOL [Suspect]
     Indication: ARTHRALGIA
     Route: 042
     Dates: start: 20080618, end: 20080622
  5. TRAMADOL [Concomitant]
     Indication: PRODUCT USED FOR UNKNOWN INDICATION
     Route: 065

REACTIONS (6)
  - HEPATIC FAILURE [None]
  - CARDIAC ARREST [None]
  - TOXICITY TO VARIOUS AGENTS [None]
  - COAGULOPATHY [None]
  - OVERDOSE [None]
  - PNEUMONIA PRIMARY ATYPICAL [None]
